FAERS Safety Report 8899926 (Version 1)
Quarter: 2012Q4

REPORT INFORMATION
  Report Type: 
  Country: US (occurrence: US)
  Receive Date: 20121108
  Receipt Date: 20121108
  Transmission Date: 20130627
  Serious: No
  Sender: FDA-Public Use
  Company Number: US-AMGEN-USASP2012036399

PATIENT
  Sex: Female

DRUGS (13)
  1. ENBREL [Suspect]
     Indication: RHEUMATOID ARTHRITIS
     Dosage: 50 mg, qwk
     Dates: start: 201204
  2. XANAX [Concomitant]
  3. PAXIL [Concomitant]
  4. PREDNISONE [Concomitant]
  5. LOTENSIN                           /00498401/ [Concomitant]
  6. METOPROLOL [Concomitant]
  7. NEXIUM                             /01479302/ [Concomitant]
  8. CALCIUM [Concomitant]
  9. BIOTIN [Concomitant]
  10. CARAFATE [Concomitant]
  11. LUTEIN                             /01638501/ [Concomitant]
  12. METHOTREXATE [Concomitant]
  13. VITAMIN D3 [Concomitant]

REACTIONS (1)
  - Herpes zoster [Unknown]
